FAERS Safety Report 20897696 (Version 1)
Quarter: 2022Q2

REPORT INFORMATION
  Report Type: Spontaneous
  Country: None (occurrence: US)
  Receive Date: 20220531
  Receipt Date: 20220531
  Transmission Date: 20220721
  Serious: Yes (Other)
  Sender: FDA-Public Use
  Company Number: US-SAOL THERAPEUTICS-2022SAO00116

PATIENT
  Age: 26 Year
  Sex: Female

DRUGS (2)
  1. BACLOFEN [Suspect]
     Active Substance: BACLOFEN
     Indication: Muscle spasticity
     Dosage: 1000 MCG/DAY
     Route: 037
     Dates: end: 20220504
  2. BACLOFEN [Suspect]
     Active Substance: BACLOFEN
     Dosage: 300 MCG/DAY
     Route: 037
     Dates: start: 20220504

REACTIONS (2)
  - Spinal fusion surgery [Unknown]
  - Device dislocation [Recovered/Resolved]

NARRATIVE: CASE EVENT DATE: 20220504
